FAERS Safety Report 10276686 (Version 1)
Quarter: 2014Q3

REPORT INFORMATION
  Report Type: Spontaneous
  Country: US (occurrence: US)
  Receive Date: 20140703
  Receipt Date: 20140703
  Transmission Date: 20150326
  Serious: Yes (Other)
  Sender: FDA-Public Use
  Company Number: PHHY2014US080665

PATIENT
  Age: 71 Year
  Sex: Female

DRUGS (1)
  1. TRAMADOL [Suspect]
     Active Substance: TRAMADOL
     Indication: ARTHRALGIA
     Dosage: 30 DF, UNK

REACTIONS (14)
  - Hallucination, visual [Unknown]
  - Leukocytosis [Unknown]
  - Hallucination, auditory [Unknown]
  - Mental status changes [Recovered/Resolved]
  - Miosis [Unknown]
  - CSF protein increased [Unknown]
  - Disorientation [Unknown]
  - Paranoia [Unknown]
  - Drug withdrawal syndrome [Unknown]
  - Malaise [Unknown]
  - Muscular weakness [Unknown]
  - Delusional disorder, persecutory type [Unknown]
  - Communication disorder [Unknown]
  - Myalgia [Unknown]
